FAERS Safety Report 7474909-9 (Version None)
Quarter: 2011Q2

REPORT INFORMATION
  Report Type: 
  Country: None (occurrence: None)
  Receive Date: 20110512
  Receipt Date: 20110506
  Transmission Date: 20111010
  Serious: Yes (Death, Other)
  Sender: FDA-Public Use
  Company Number: US-AMGEN-USASP2011020134

PATIENT
  Age: 62 Year
  Sex: Male
  Weight: 83.9 kg

DRUGS (15)
  1. LEXAPRO [Concomitant]
     Dosage: UNK
  2. FENTANYL                           /00174602/ [Concomitant]
     Dosage: 250 A?G, UNK
  3. PREDNISONE [Concomitant]
     Dosage: 10 MG, QD
  4. DEMECLOCYCLINE HCL [Concomitant]
     Dosage: UNK UNK, BID
  5. DEXAMETHASONE [Concomitant]
     Dosage: 8 MG, BID
  6. IRON SULFATETHIAMIN COMPOUND TAB [Concomitant]
     Dosage: UNK UNK, QD
  7. ATOVAQUONE [Concomitant]
     Dosage: 750 MG, BID
  8. CALCIUM CARBONATE [Concomitant]
     Dosage: 1250 MG, BID
  9. COLACE [Concomitant]
     Dosage: 100 MG, BID
  10. NPLATE [Suspect]
     Indication: IDIOPATHIC THROMBOCYTOPENIC PURPURA
     Dosage: 10 A?G/KG, QWK
     Route: 058
     Dates: start: 20100427, end: 20101222
  11. LACTULOSE [Concomitant]
     Dosage: UNK UNK, PRN
  12. ZYPREXA [Concomitant]
     Dosage: 2.5 MG, UNK
  13. FLORASTOR [Concomitant]
     Dosage: 250 MG, BID
  14. SENNA                              /00142201/ [Concomitant]
     Dosage: 15 MG, QD
  15. CARAFATE [Concomitant]

REACTIONS (10)
  - CONSTIPATION [None]
  - HERPES ZOSTER OPHTHALMIC [None]
  - ABDOMINAL DISCOMFORT [None]
  - NEOPLASM MALIGNANT [None]
  - ABASIA [None]
  - COUGH [None]
  - HYPOPHAGIA [None]
  - OEDEMA PERIPHERAL [None]
  - SMALL CELL LUNG CANCER METASTATIC [None]
  - DEHYDRATION [None]
